FAERS Safety Report 13911617 (Version 1)
Quarter: 2017Q3

REPORT INFORMATION
  Report Type: Spontaneous
  Country: US (occurrence: US)
  Receive Date: 20170828
  Receipt Date: 20170828
  Transmission Date: 20171127
  Serious: No
  Sender: FDA-Public Use
  Company Number: US-ROCHE-1143119

PATIENT
  Sex: Male
  Weight: 8.4 kg

DRUGS (15)
  1. TOBRAMYCIN. [Concomitant]
     Active Substance: TOBRAMYCIN
     Route: 065
  2. CARNITOR [Concomitant]
     Active Substance: LEVOCARNITINE
     Route: 065
  3. NU-IRON [Concomitant]
     Active Substance: FERRIC POLYSACCHARIDE COMPLEX
     Route: 042
  4. VASOTEC [Concomitant]
     Active Substance: ENALAPRIL MALEATE
     Route: 065
  5. NUTROPIN AQ [Suspect]
     Active Substance: SOMATROPIN
     Indication: AZOTAEMIA
  6. KAYEXALATE [Concomitant]
     Active Substance: SODIUM POLYSTYRENE SULFONATE
     Dosage: 15 CC
     Route: 065
  7. XOPENEX [Concomitant]
     Active Substance: LEVALBUTEROL HYDROCHLORIDE
     Route: 065
  8. ERYTHROPOIETIN [Concomitant]
     Active Substance: ERYTHROPOIETIN
     Dosage: 1600 UNITS
     Route: 058
  9. ZANTAC [Concomitant]
     Active Substance: RANITIDINE HYDROCHLORIDE
     Route: 065
  10. FLOVENT [Concomitant]
     Active Substance: FLUTICASONE PROPIONATE
  11. BICITRA [Concomitant]
     Active Substance: CITRIC ACID, 1-STEARYL ESTER\SODIUM CITRATE
     Dosage: 5 CC
     Route: 065
  12. NEPHRO-VITE [Concomitant]
     Route: 065
  13. CITRACAL [Concomitant]
     Active Substance: CALCIUM CITRATE
     Dosage: 10 CC
     Route: 065
  14. NUTROPIN AQ [Suspect]
     Active Substance: SOMATROPIN
     Indication: CHRONIC KIDNEY DISEASE
     Route: 058
  15. CALCIJEX [Concomitant]
     Active Substance: CALCITRIOL
     Route: 042

REACTIONS (6)
  - Haematocrit decreased [Unknown]
  - Sinus tachycardia [Unknown]
  - Somnolence [Unknown]
  - Malaise [Unknown]
  - Increased bronchial secretion [Unknown]
  - Lethargy [Unknown]
